FAERS Safety Report 19958907 (Version 1)
Quarter: 2021Q4

REPORT INFORMATION
  Report Type: Spontaneous
  Country: US (occurrence: US)
  Receive Date: 20211012
  Receipt Date: 20211012
  Transmission Date: 20220303
  Serious: No
  Sender: FDA-Public Use
  Company Number: None

PATIENT

DRUGS (2)
  1. MONTELUKAST SODIUM [Suspect]
     Active Substance: MONTELUKAST SODIUM
  2. MODAFINIL [Suspect]
     Active Substance: MODAFINIL

REACTIONS (3)
  - Wrong product administered [None]
  - Insomnia [None]
  - Vomiting [None]
